FAERS Safety Report 9929960 (Version 1)
Quarter: 2014Q1

REPORT INFORMATION
  Report Type: Spontaneous
  Country: US (occurrence: US)
  Receive Date: 20140227
  Receipt Date: 20140227
  Transmission Date: 20141002
  Serious: Yes (Hospitalization)
  Sender: FDA-Public Use
  Company Number: PHHY2014US021123

PATIENT
  Age: 78 Year
  Sex: Female

DRUGS (2)
  1. DIGOXIN [Suspect]
     Indication: CARDIAC FAILURE CONGESTIVE
     Dosage: 0.125 MG, PER DAY
  2. DIGOXIN [Suspect]
     Dosage: 5 MG, UNK

REACTIONS (10)
  - Blood pressure increased [Unknown]
  - Heart rate decreased [Unknown]
  - Blood creatinine increased [Unknown]
  - Toxicity to various agents [Unknown]
  - Nausea [Unknown]
  - Vomiting [Unknown]
  - Dizziness [Unknown]
  - Ventricular extrasystoles [Unknown]
  - Intentional overdose [Recovering/Resolving]
  - Suicide attempt [Unknown]
